FAERS Safety Report 15470121 (Version 7)
Quarter: 2020Q1

REPORT INFORMATION
  Report Type: Spontaneous
  Country: US (occurrence: US)
  Receive Date: 20181005
  Receipt Date: 20200309
  Transmission Date: 20200409
  Serious: Yes (Hospitalization)
  Sender: FDA-Public Use
  Company Number: US-ACTELION-A-NJ2018-179564

PATIENT
  Age: 65 Year
  Sex: Female

DRUGS (13)
  1. LETAIRIS [Concomitant]
     Active Substance: AMBRISENTAN
  2. ALBUTEROL. [Concomitant]
     Active Substance: ALBUTEROL
  3. LEXAPRO [Concomitant]
     Active Substance: ESCITALOPRAM OXALATE
  4. OPSUMIT [Suspect]
     Active Substance: MACITENTAN
     Indication: PULMONARY ARTERIAL HYPERTENSION
     Dosage: 10 MG, QD
     Route: 048
     Dates: start: 20180730
  5. SPIRIVA [Concomitant]
     Active Substance: TIOTROPIUM BROMIDE MONOHYDRATE
  6. SPIRONOLACTONE. [Concomitant]
     Active Substance: SPIRONOLACTONE
  7. DIGOXIN. [Concomitant]
     Active Substance: DIGOXIN
  8. FUROSEMIDE. [Concomitant]
     Active Substance: FUROSEMIDE
  9. OPSUMIT [Suspect]
     Active Substance: MACITENTAN
     Dosage: 10 MG, QD
     Route: 048
     Dates: start: 20180801
  10. SILDENAFIL. [Concomitant]
     Active Substance: SILDENAFIL
  11. ORENITRAM [Concomitant]
     Active Substance: TREPROSTINIL
  12. PREDNISONE. [Concomitant]
     Active Substance: PREDNISONE
  13. ADVAIR HFA [Concomitant]
     Active Substance: FLUTICASONE PROPIONATE\SALMETEROL XINAFOATE

REACTIONS (8)
  - Rash pruritic [Not Recovered/Not Resolved]
  - Sinusitis [Unknown]
  - Memory impairment [Not Recovered/Not Resolved]
  - Pain in jaw [Unknown]
  - Pulmonary arterial hypertension [Unknown]
  - Headache [Recovered/Resolved]
  - Product dose omission [Unknown]
  - Diarrhoea [Unknown]

NARRATIVE: CASE EVENT DATE: 20180924
